FAERS Safety Report 15106996 (Version 1)
Quarter: 2018Q3

REPORT INFORMATION
  Report Type: Spontaneous
  Country: US (occurrence: US)
  Receive Date: 20180704
  Receipt Date: 20180704
  Transmission Date: 20181010
  Serious: No
  Sender: FDA-Public Use
  Company Number: US-009507513-1807USA000949

PATIENT
  Age: 37 Year
  Sex: Female
  Weight: 72.56 kg

DRUGS (1)
  1. NEXPLANON [Suspect]
     Active Substance: ETONOGESTREL
     Indication: MENSTRUATION IRREGULAR
     Dosage: EVERY 3 YEARS
     Route: 059
     Dates: start: 20140421

REACTIONS (9)
  - Incorrect drug administration duration [Unknown]
  - Decreased appetite [Unknown]
  - Weight increased [Unknown]
  - Complication associated with device [Not Recovered/Not Resolved]
  - Menorrhagia [Unknown]
  - Mood altered [Unknown]
  - Migraine [Unknown]
  - Product use in unapproved indication [Unknown]
  - Back pain [Unknown]

NARRATIVE: CASE EVENT DATE: 20140421
